FAERS Safety Report 7020838-4 (Version None)
Quarter: 2010Q3

REPORT INFORMATION
  Report Type: 
  Country: None (occurrence: None)
  Receive Date: 20100929
  Receipt Date: 20100921
  Transmission Date: 20110219
  Serious: Yes (Other)
  Sender: FDA-Public Use
  Company Number: JP-PFIZER INC-2010115490

PATIENT
  Age: 65 Year
  Sex: Male

DRUGS (5)
  1. CHAMPIX [Suspect]
     Indication: EX-TOBACCO USER
     Dosage: 0.5 MG, 1X/DAY
     Route: 048
     Dates: start: 20100808, end: 20100810
  2. CHAMPIX [Suspect]
     Dosage: 0.5 MG, 2X/DAY
     Route: 048
     Dates: start: 20100811, end: 20100814
  3. CHAMPIX [Suspect]
     Dosage: 1 MG, 2X/DAY
     Dates: start: 20100815, end: 20100821
  4. CHAMPIX [Suspect]
     Dosage: 1 MG, 2X/DAY
     Dates: start: 20100911
  5. ALCOHOL [Suspect]
     Dosage: UNK

REACTIONS (2)
  - ALCOHOL INTERACTION [None]
  - ANTEROGRADE AMNESIA [None]
